FAERS Safety Report 6749030-5 (Version None)
Quarter: 2010Q2

REPORT INFORMATION
  Report Type: 
  Country: None (occurrence: None)
  Receive Date: 20100601
  Receipt Date: 20100514
  Transmission Date: 20101027
  Serious: Yes (Hospitalization, Other)
  Sender: FDA-Public Use
  Company Number: US-BAYER-200715855NA

PATIENT
  Age: 39 Year
  Sex: Female
  Weight: 64 kg

DRUGS (1)
  1. YASMIN [Suspect]
     Indication: ORAL CONTRACEPTION
     Route: 048
     Dates: start: 20070201, end: 20071018

REACTIONS (25)
  - ABNORMAL BEHAVIOUR [None]
  - AGITATION [None]
  - ANXIETY [None]
  - APHASIA [None]
  - BALANCE DISORDER [None]
  - CEREBRAL ARTERY OCCLUSION [None]
  - CEREBROVASCULAR ACCIDENT [None]
  - CLUMSINESS [None]
  - CONFUSIONAL STATE [None]
  - DIZZINESS [None]
  - EAR PAIN [None]
  - FACIAL PALSY [None]
  - INCOHERENT [None]
  - INCREASED TENDENCY TO BRUISE [None]
  - INJURY [None]
  - INNER EAR DISORDER [None]
  - MALAISE [None]
  - MITRAL VALVE SCLEROSIS [None]
  - MUSCULAR WEAKNESS [None]
  - NERVE INJURY [None]
  - OTORRHOEA [None]
  - PAIN [None]
  - SPEECH DISORDER [None]
  - THROMBOSIS [None]
  - VERTIGO [None]
